FAERS Safety Report 8969793 (Version 1)
Quarter: 2012Q4

REPORT INFORMATION
  Report Type: 
  Country: US (occurrence: US)
  Receive Date: 20121218
  Receipt Date: 20121218
  Transmission Date: 20130627
  Serious: No
  Sender: FDA-Public Use
  Company Number: US-B.I. PHARMACEUTICALS,INC./RIDGEFIELD-2012-BI-02847BP

PATIENT
  Sex: Male
  Weight: 118 kg

DRUGS (7)
  1. PRADAXA [Suspect]
     Indication: ATRIAL FIBRILLATION
     Dosage: 300 mg
     Route: 048
     Dates: start: 201201
  2. LISINOPRIL [Concomitant]
     Indication: HYPERTENSION
     Dosage: 80 mg
     Route: 048
  3. LEVOTHROID [Concomitant]
     Indication: HYPOTHYROIDISM
     Dosage: 75 mcg
     Route: 048
  4. SIMVASTATIN [Concomitant]
     Indication: BLOOD CHOLESTEROL INCREASED
     Dosage: 20 mg
     Route: 048
  5. DOXAZOSIN [Concomitant]
     Dosage: 4 mg
     Route: 048
  6. HYDROCHLOROTHIAZIDE [Concomitant]
     Dosage: 12.5 mg
     Route: 048
  7. AMIODARONE [Concomitant]
     Dosage: 200 mg
     Route: 048

REACTIONS (3)
  - Abdominal discomfort [Recovered/Resolved]
  - Mouth haemorrhage [Not Recovered/Not Resolved]
  - Flatulence [Not Recovered/Not Resolved]
